FAERS Safety Report 8777230 (Version 1)
Quarter: 2012Q4

REPORT INFORMATION
  Report Type: 
  Country: AR (occurrence: AR)
  Receive Date: 20120911
  Receipt Date: 20120911
  Transmission Date: 20130627
  Serious: Yes (Death)
  Sender: FDA-Public Use
  Company Number: AR-ASTRAZENECA-2012SE70493

PATIENT
  Sex: Female

DRUGS (1)
  1. BUDESONIDE\FORMOCORTAL [Suspect]
     Dosage: UNKNOWN FREQUENCY
     Route: 055

REACTIONS (1)
  - Death [Fatal]
